FAERS Safety Report 7194201-X (Version None)
Quarter: 2010Q4

REPORT INFORMATION
  Report Type: 
  Country: None (occurrence: None)
  Receive Date: 20101223
  Receipt Date: 20101217
  Transmission Date: 20110411
  Serious: Yes (Hospitalization)
  Sender: FDA-Public Use
  Company Number: US-AMGEN-USASP2010010017

PATIENT

DRUGS (3)
  1. ENBREL [Suspect]
     Indication: RHEUMATOID ARTHRITIS
     Dosage: 50 MG, QWK
     Dates: start: 20081201
  2. ENBREL [Suspect]
     Dosage: 50 MG, Q2WK
     Dates: end: 20101026
  3. TREXALL [Concomitant]
     Dosage: 1 MG, UNK
     Dates: start: 20010101

REACTIONS (5)
  - LOWER RESPIRATORY TRACT INFECTION [None]
  - PNEUMONIA [None]
  - RESPIRATORY FAILURE [None]
  - RHEUMATOID ARTHRITIS [None]
  - SYNCOPE [None]
